FAERS Safety Report 17620079 (Version 1)
Quarter: 2020Q2

REPORT INFORMATION
  Report Type: Spontaneous
  Country: DE (occurrence: DE)
  Receive Date: 20200402
  Receipt Date: 20200402
  Transmission Date: 20200713
  Serious: Yes (Life-Threatening, Hospitalization)
  Sender: FDA-Public Use
  Company Number: DE-CELLTRION INC.-2020DE021189

PATIENT

DRUGS (4)
  1. INFLIXIMAB (UNKNOWN) [Suspect]
     Active Substance: INFLIXIMAB
  2. AZATHIOPRINE. [Suspect]
     Active Substance: AZATHIOPRINE
  3. RITUXIMAB (UNKNOWN) [Interacting]
     Active Substance: RITUXIMAB
  4. MYCOPHENOLIC ACID. [Suspect]
     Active Substance: MYCOPHENOLIC ACID

REACTIONS (3)
  - Off label use [Unknown]
  - Product use issue [Unknown]
  - Liver disorder [Unknown]
